FAERS Safety Report 8031728 (Version 6)
Quarter: 2014Q4

REPORT INFORMATION
  Report Type: Spontaneous
  Country: US (occurrence: US)
  Receive Date: 20110712
  Receipt Date: 20141125
  Transmission Date: 20150529
  Serious: Yes (Other)
  Sender: FDA-Public Use
  Company Number: US-ASTRAZENECA-2011SE35385

PATIENT
  Age: 56 Year
  Sex: Female
  Weight: 93 kg

DRUGS (40)
  1. CRESTOR [Suspect]
     Active Substance: ROSUVASTATIN CALCIUM
     Indication: CARDIAC DISORDER
     Route: 048
     Dates: start: 2006, end: 201411
  2. CYCLOBENZAPRINE [Concomitant]
     Active Substance: CYCLOBENZAPRINE
     Indication: COMPLEX REGIONAL PAIN SYNDROME
  3. VISINE [Concomitant]
     Active Substance: TETRAHYDROZOLINE HYDROCHLORIDE
     Indication: DRY EYE
     Dosage: TWO DROPS EACH EYE, 3 TIMES A DAY
  4. NEXIUM [Suspect]
     Active Substance: ESOMEPRAZOLE MAGNESIUM
     Indication: GASTROOESOPHAGEAL REFLUX DISEASE
     Route: 048
     Dates: start: 2001, end: 20141114
  5. CARISOPRODOL. [Concomitant]
     Active Substance: CARISOPRODOL
     Indication: TEMPOROMANDIBULAR JOINT SYNDROME
  6. CENTRUM SILVER [Concomitant]
     Active Substance: VITAMINS
     Indication: VITAMIN SUPPLEMENTATION
     Dosage: ONE A DAY
  7. NEXIUM [Suspect]
     Active Substance: ESOMEPRAZOLE MAGNESIUM
     Indication: BARRETT^S OESOPHAGUS
     Route: 048
  8. TRAZODONE [Concomitant]
     Active Substance: TRAZODONE HYDROCHLORIDE
     Indication: INSOMNIA
  9. PROVENTIL [Concomitant]
     Active Substance: ALBUTEROL
     Indication: ASTHMA
  10. PROVENTIL [Concomitant]
     Active Substance: ALBUTEROL
     Indication: COUGH
  11. NAPROXEN. [Concomitant]
     Active Substance: NAPROXEN
     Indication: ARTHRITIS
  12. NAPROXEN. [Concomitant]
     Active Substance: NAPROXEN
     Indication: TEMPOROMANDIBULAR JOINT SYNDROME
  13. NEXIUM [Suspect]
     Active Substance: ESOMEPRAZOLE MAGNESIUM
     Indication: GASTROOESOPHAGEAL REFLUX DISEASE
     Route: 048
  14. LYRICA [Concomitant]
     Active Substance: PREGABALIN
     Indication: POST-TRAUMATIC HEADACHE
  15. PROCHOLORPERAZINE [Concomitant]
     Indication: NAUSEA
  16. PROVENTIL [Concomitant]
     Active Substance: ALBUTEROL
     Indication: ASTHMA
  17. NEXIUM [Suspect]
     Active Substance: ESOMEPRAZOLE MAGNESIUM
     Indication: HIATUS HERNIA
     Route: 048
  18. NEXIUM [Suspect]
     Active Substance: ESOMEPRAZOLE MAGNESIUM
     Indication: BARRETT^S OESOPHAGUS
     Route: 048
     Dates: start: 2001, end: 20141114
  19. RHINOCORT AQUA [Suspect]
     Active Substance: BUDESONIDE
     Indication: SINUS CONGESTION
     Dosage: 32 MCG THREE TIMES A DAY AS NEEDED, TWO SPRAYS EACH NOSTRIL
     Route: 045
  20. EPIPEN [Concomitant]
     Active Substance: EPINEPHRINE
     Indication: ALLERGY TO ARTHROPOD STING
  21. ULTRAM [Concomitant]
     Active Substance: TRAMADOL HYDROCHLORIDE
     Indication: COMPLEX REGIONAL PAIN SYNDROME
     Dosage: 2 PILLS 3-4 TIMES A DAY AS NEEDED
  22. VICODIN/APAP [Concomitant]
     Indication: FIBROMYALGIA
     Dosage: 5/500 MG AS NEEDED/ ONE A DAY
  23. CYCLOBENZAPRINE [Concomitant]
     Active Substance: CYCLOBENZAPRINE
     Indication: ARTHRITIS
  24. AMOXICILLIN. [Concomitant]
     Active Substance: AMOXICILLIN
     Dosage: ONE HOUR BEFORE DENTAL APPT.
  25. VIACTIV-PLUS D [Concomitant]
     Indication: OSTEOPOROSIS
     Dosage: TWO A DAY
  26. NEXIUM [Suspect]
     Active Substance: ESOMEPRAZOLE MAGNESIUM
     Indication: REFLUX LARYNGITIS
     Route: 048
  27. OXYCODONE [Concomitant]
     Active Substance: OXYCODONE
     Indication: ARTHRITIS
     Dosage: 5/325 MG AS NEEDED
  28. ASPIRIN. [Concomitant]
     Active Substance: ASPIRIN
     Indication: BLOOD CHOLESTEROL INCREASED
  29. CLARINEX-D [Concomitant]
     Active Substance: DESLORATADINE\PSEUDOEPHEDRINE SULFATE
     Indication: SINUSITIS
     Dosage: 5-240 MG/ ONE TABLET DAILY/AS NEEDED
  30. FLEXERIL [Concomitant]
     Active Substance: CYCLOBENZAPRINE HYDROCHLORIDE
  31. RHINOCORT AQUA [Suspect]
     Active Substance: BUDESONIDE
     Indication: SINUSITIS
     Dosage: 32 MCG THREE TIMES A DAY AS NEEDED, TWO SPRAYS EACH NOSTRIL
     Route: 045
  32. NEXIUM [Suspect]
     Active Substance: ESOMEPRAZOLE MAGNESIUM
     Indication: HIATUS HERNIA
     Route: 048
     Dates: start: 2001, end: 20141114
  33. LYRICA [Concomitant]
     Active Substance: PREGABALIN
     Indication: FIBROMYALGIA
  34. PROVENTIL [Concomitant]
     Active Substance: ALBUTEROL
     Indication: CHEST DISCOMFORT
  35. PROVENTIL [Concomitant]
     Active Substance: ALBUTEROL
     Indication: COUGH
  36. PROVENTIL [Concomitant]
     Active Substance: ALBUTEROL
     Indication: CHEST DISCOMFORT
  37. TUMS ULTRA STRENGTH [Concomitant]
     Indication: DYSPEPSIA
     Dosage: AS NEEDED
  38. ADVAIR HFA [Concomitant]
     Active Substance: FLUTICASONE PROPIONATE\SALMETEROL XINAFOATE
  39. NEXIUM [Suspect]
     Active Substance: ESOMEPRAZOLE MAGNESIUM
     Indication: REFLUX LARYNGITIS
     Route: 048
     Dates: start: 2001, end: 20141114
  40. CRESTOR [Suspect]
     Active Substance: ROSUVASTATIN CALCIUM
     Indication: HYPERCHOLESTEROLAEMIA
     Route: 048
     Dates: start: 2006, end: 201411

REACTIONS (22)
  - Trigger finger [Unknown]
  - Carpal tunnel syndrome [Unknown]
  - Fibromyalgia [Unknown]
  - General physical health deterioration [Unknown]
  - Drug dose omission [Unknown]
  - Fall [Unknown]
  - Pain [Unknown]
  - Dyspepsia [Unknown]
  - Complex regional pain syndrome [Unknown]
  - Hypertonic bladder [Unknown]
  - Off label use [Unknown]
  - Lyme disease [Unknown]
  - Temporomandibular joint syndrome [Unknown]
  - Angioedema [Unknown]
  - Sinusitis [Unknown]
  - Dyspnoea [Unknown]
  - Nerve injury [Unknown]
  - Arthritis [Unknown]
  - Nausea [Unknown]
  - Meniscus injury [Unknown]
  - Sjogren^s syndrome [Unknown]
  - Intentional product misuse [Unknown]

NARRATIVE: CASE EVENT DATE: 2001
